FAERS Safety Report 5887103-X (Version None)
Quarter: 2008Q3

REPORT INFORMATION
  Report Type: 
  Country: None (occurrence: None)
  Receive Date: 20080917
  Receipt Date: 20080905
  Transmission Date: 20090109
  Serious: Yes (Death, Life-Threatening, Hospitalization)
  Sender: FDA-Public Use
  Company Number: DE-PFIZER INC-2008070689

PATIENT
  Sex: Male

DRUGS (5)
  1. SUTENT [Suspect]
     Indication: METASTATIC RENAL CELL CARCINOMA
     Route: 048
     Dates: start: 20080306, end: 20080630
  2. FLUVASTATIN [Concomitant]
     Route: 048
     Dates: start: 20061001
  3. DIOVANE [Concomitant]
     Route: 048
     Dates: start: 20061001
  4. METOPROLOL TARTRATE [Concomitant]
     Route: 048
     Dates: start: 20061001
  5. ASPIRIN [Concomitant]
     Dates: start: 20061001

REACTIONS (1)
  - MYOCARDIAL INFARCTION [None]
